FAERS Safety Report 12183182 (Version 1)
Quarter: 2016Q1

REPORT INFORMATION
  Report Type: Spontaneous
  Country: US (occurrence: None)
  Receive Date: 20160315
  Receipt Date: 20160315
  Transmission Date: 20160526
  Serious: Yes (Other)
  Sender: FDA-Public Use
  Company Number: None

PATIENT
  Age: 30 Year
  Sex: Female

DRUGS (4)
  1. SERTRALINE [Suspect]
     Active Substance: SERTRALINE HYDROCHLORIDE
     Indication: POSTPARTUM DEPRESSION
     Dates: start: 20131109, end: 20150530
  2. SERTRALINE [Suspect]
     Active Substance: SERTRALINE HYDROCHLORIDE
     Indication: DEPRESSION
     Dates: start: 20131109, end: 20150530
  3. PRENATAL VITAMIN [Concomitant]
     Active Substance: VITAMINS
  4. FISH OIL [Concomitant]
     Active Substance: FISH OIL

REACTIONS (8)
  - Dyspnoea [None]
  - Chest pain [None]
  - Hypertension [None]
  - Abdominal pain [None]
  - Eructation [None]
  - Anaphylactic reaction [None]
  - Abdominal pain upper [None]
  - Chest discomfort [None]

NARRATIVE: CASE EVENT DATE: 20140120
